FAERS Safety Report 12266265 (Version 1)
Quarter: 2016Q2

REPORT INFORMATION
  Report Type: Spontaneous
  Country: US (occurrence: None)
  Receive Date: 20160413
  Receipt Date: 20160413
  Transmission Date: 20160815
  Serious: Yes (Death)
  Sender: FDA-Public Use
  Company Number: None

PATIENT
  Age: 15 Year
  Sex: Female

DRUGS (2)
  1. HUMALOG [Suspect]
     Active Substance: INSULIN LISPRO
     Indication: LUNG TRANSPLANT
     Dosage: AS DIRECTED SUBCUTANEOUS
     Route: 058
     Dates: start: 20150123
  2. MEPHYTON [Suspect]
     Active Substance: PHYTONADIONE
     Indication: LUNG TRANSPLANT
     Route: 048
     Dates: start: 20150123

REACTIONS (1)
  - Death [None]

NARRATIVE: CASE EVENT DATE: 20160407
